FAERS Safety Report 19267975 (Version 2)
Quarter: 2021Q2

REPORT INFORMATION
  Report Type: Report from Study
  Country: FR (occurrence: FR)
  Receive Date: 20210518
  Receipt Date: 20210531
  Transmission Date: 20210717
  Serious: Yes (Other)
  Sender: FDA-Public Use
  Company Number: PHHY2019FR052947

PATIENT
  Age: 82 Year
  Sex: Female
  Weight: 68 kg

DRUGS (3)
  1. VOTRIENT [Suspect]
     Active Substance: PAZOPANIB HYDROCHLORIDE
     Dosage: 600 MG, QD
     Route: 048
     Dates: start: 20191115
  2. VOTRIENT [Suspect]
     Active Substance: PAZOPANIB HYDROCHLORIDE
     Dosage: 600 MG, QD
     Route: 048
     Dates: start: 20190208
  3. VOTRIENT [Suspect]
     Active Substance: PAZOPANIB HYDROCHLORIDE
     Indication: RENAL CANCER METASTATIC
     Dosage: 600 MG, QD
     Route: 048
     Dates: start: 20181208

REACTIONS (10)
  - Anaemia [Recovered/Resolved]
  - Hypothyroidism [Recovered/Resolved]
  - Thrombocytopenia [Recovered/Resolved]
  - Amaurosis fugax [Recovered/Resolved]
  - Asthenia [Recovered/Resolved]
  - Transaminases increased [Recovered/Resolved]
  - Epistaxis [Recovered/Resolved]
  - Hyperkalaemia [Recovered/Resolved]
  - Weight decreased [Not Recovered/Not Resolved]
  - Epistaxis [Recovered/Resolved]

NARRATIVE: CASE EVENT DATE: 20190102
